FAERS Safety Report 9178057 (Version 1)
Quarter: 2012Q4

REPORT INFORMATION
  Report Type: 
  Country: US (occurrence: US)
  Receive Date: 20121019
  Receipt Date: 20121019
  Transmission Date: 20130627
  Serious: Yes (Life-Threatening, Hospitalization)
  Sender: FDA-Public Use
  Company Number: US-RB-045713-12

PATIENT
  Age: 18 Year
  Sex: Male

DRUGS (3)
  1. SUBOXONE UNSPECIFIED [Suspect]
     Indication: DRUG ABUSE
     Dosage: Dosing details unspecified
     Route: 065
  2. XANAX [Suspect]
     Indication: PRODUCT USED FOR UNKNOWN INDICATION
     Dosage: Dosing details unspecified
     Route: 065
  3. VICODIN [Suspect]
     Indication: LIMB INJURY
     Dosage: Dosing details unspecified
     Route: 065
     Dates: start: 2012

REACTIONS (5)
  - Loss of consciousness [Not Recovered/Not Resolved]
  - Overdose [Not Recovered/Not Resolved]
  - Limb injury [Unknown]
  - Drug dependence [Unknown]
  - Substance abuse [Recovered/Resolved]
